FAERS Safety Report 4522209-9 (Version None)
Quarter: 2004Q4

REPORT INFORMATION
  Report Type: 
  Country: None (occurrence: None)
  Receive Date: 20041207
  Receipt Date: 20041118
  Transmission Date: 20050328
  Serious: Yes (Hospitalization, Other)
  Sender: FDA-Public Use
  Company Number: GBS041115977

PATIENT
  Age: 8 Year
  Sex: Male
  Weight: 30 kg

DRUGS (3)
  1. STRATTERA [Suspect]
     Indication: ATTENTION DEFICIT/HYPERACTIVITY DISORDER
     Dosage: 18 MG
     Dates: start: 20041104, end: 20041114
  2. RITALIN [Concomitant]
  3. RISPERIDONE [Concomitant]

REACTIONS (4)
  - DIZZINESS [None]
  - JAUNDICE [None]
  - LOSS OF CONSCIOUSNESS [None]
  - VOMITING [None]
